FAERS Safety Report 8076364-7 (Version None)
Quarter: 2012Q1

REPORT INFORMATION
  Report Type: 
  Country: None (occurrence: None)
  Receive Date: 20120127
  Receipt Date: 20120123
  Transmission Date: 20120608
  Serious: Yes (Other)
  Sender: FDA-Public Use
  Company Number: IT-ROCHE-1033076

PATIENT
  Sex: Female

DRUGS (6)
  1. DIBASE [Concomitant]
  2. TACHIDOL [Concomitant]
  3. BONIVA [Suspect]
     Indication: OSTEOPOROSIS
     Route: 048
     Dates: start: 20080624, end: 20091103
  4. AZATIOPRINA [Concomitant]
  5. LYRICA [Concomitant]
  6. ARAVA [Concomitant]

REACTIONS (1)
  - OSTEITIS [None]
